FAERS Safety Report 11203390 (Version 1)
Quarter: 2015Q2

REPORT INFORMATION
  Report Type: Spontaneous
  Country: US (occurrence: US)
  Receive Date: 20150619
  Receipt Date: 20150619
  Transmission Date: 20150821
  Serious: No
  Sender: FDA-Public Use
  Company Number: US-TEVA-572107USA

PATIENT
  Age: 24 Year
  Sex: Female

DRUGS (1)
  1. COPAXONE [Suspect]
     Active Substance: GLATIRAMER ACETATE
     Indication: MULTIPLE SCLEROSIS
     Dosage: 60 MILLIGRAM DAILY;
     Route: 058
     Dates: start: 20150505

REACTIONS (3)
  - Peripheral swelling [Unknown]
  - Lymphadenopathy [Unknown]
  - Injection site reaction [Unknown]
